FAERS Safety Report 6681868-5 (Version None)
Quarter: 2010Q2

REPORT INFORMATION
  Report Type: 
  Country: None (occurrence: None)
  Receive Date: 20100414
  Receipt Date: 20100330
  Transmission Date: 20101027
  Serious: Yes (Other)
  Sender: FDA-Public Use
  Company Number: FR-GENENTECH-299048

PATIENT
  Sex: Female

DRUGS (13)
  1. XOLAIR [Suspect]
     Indication: ASTHMA
     Dosage: 300 MG, 1/MONTH
     Route: 058
     Dates: start: 20090716
  2. XOLAIR [Suspect]
     Dosage: 300 MG, 1/MONTH
     Route: 058
  3. XOLAIR [Suspect]
     Dosage: 300 MG, 1/MONTH
     Route: 058
  4. XOLAIR [Suspect]
     Dosage: 300 MG, 1/MONTH
     Route: 058
  5. XOLAIR [Suspect]
     Dosage: 300 MG, 1/MONTH
     Route: 058
  6. XOLAIR [Suspect]
     Dosage: 300 MG, 1/MONTH
     Route: 058
  7. XOLAIR [Suspect]
     Dosage: 300 MG, 1/MONTH
  8. XOLAIR [Suspect]
     Dosage: 300 MG, 1/MONTH
     Route: 058
  9. XOLAIR [Suspect]
     Dosage: 300 MG, 1/MONTH
     Route: 058
     Dates: start: 20100225
  10. SINGULAIR [Concomitant]
     Indication: DRUG USE FOR UNKNOWN INDICATION
     Dosage: UNK
     Dates: start: 20060101
  11. EBASTINE [Concomitant]
     Indication: DRUG USE FOR UNKNOWN INDICATION
     Dosage: UNK
     Dates: start: 20080101
  12. ATARAX [Concomitant]
     Indication: DRUG USE FOR UNKNOWN INDICATION
     Dosage: UNK
     Dates: start: 19960101
  13. SERETIDE [Concomitant]
     Indication: DRUG USE FOR UNKNOWN INDICATION
     Dosage: UNK
     Dates: start: 20060101

REACTIONS (7)
  - BRONCHITIS [None]
  - INJECTION SITE ERYTHEMA [None]
  - INJECTION SITE OEDEMA [None]
  - INJECTION SITE PAIN [None]
  - INJECTION SITE PUSTULE [None]
  - PURULENT DISCHARGE [None]
  - PYREXIA [None]
